FAERS Safety Report 6368156-1 (Version None)
Quarter: 2009Q3

REPORT INFORMATION
  Report Type: 
  Country: None (occurrence: None)
  Receive Date: 20090915
  Receipt Date: 20090915
  Transmission Date: 20100115
  Serious: No
  Sender: FDA-Public Use
  Company Number: None

PATIENT
  Age: 63 Year
  Sex: Male
  Weight: 66 kg

DRUGS (1)
  1. SULFACETAMIDE SODIUM [Suspect]
     Indication: ACNE
     Dosage: SMALL MOUNT EVERY DAY TOP
     Route: 061
     Dates: start: 20070109, end: 20090909

REACTIONS (4)
  - ERYTHEMA [None]
  - PRODUCT SUBSTITUTION ISSUE [None]
  - RASH PRURITIC [None]
  - URTICARIA [None]
